FAERS Safety Report 7814459-0 (Version None)
Quarter: 2011Q4

REPORT INFORMATION
  Report Type: 
  Country: None (occurrence: None)
  Receive Date: 20111014
  Receipt Date: 20111004
  Transmission Date: 20120403
  Serious: Yes (Hospitalization)
  Sender: FDA-Public Use
  Company Number: US-SANOFI-AVENTIS-2011SA044118

PATIENT
  Sex: Female
  Weight: 94 kg

DRUGS (3)
  1. WARFARIN SODIUM [Concomitant]
     Route: 065
  2. DRONEDARONE HCL [Suspect]
     Indication: ATRIAL FIBRILLATION
     Route: 048
     Dates: start: 20101021
  3. NEBIVOLOL HCL [Concomitant]
     Route: 065

REACTIONS (1)
  - HAEMORRHAGE [None]
